FAERS Safety Report 25743774 (Version 2)
Quarter: 2025Q3

REPORT INFORMATION
  Report Type: Report from Study
  Country: US (occurrence: US)
  Receive Date: 20250831
  Receipt Date: 20250903
  Transmission Date: 20251021
  Serious: No
  Sender: BRISTOL-MYERS SQUIBB COMPANY
  Company Number: US-BRISTOL-MYERS SQUIBB COMPANY-2025-119999

PATIENT
  Age: 67 Year
  Sex: Male
  Weight: 67.4 kg

DRUGS (4)
  1. POMALYST [Suspect]
     Active Substance: POMALIDOMIDE
     Indication: Plasma cell myeloma
     Dosage: FREQ:  TAKE WHOLE WITH WATER, WITH OR WITHOUT FOOD. AT THE SAME TIME EACH DAY
     Route: 048
     Dates: start: 20250806
  2. POMALYST [Suspect]
     Active Substance: POMALIDOMIDE
     Route: 048
  3. DEXAMETHASONE [Concomitant]
     Active Substance: DEXAMETHASONE
     Indication: Product used for unknown indication
  4. REVLIMID [Concomitant]
     Active Substance: LENALIDOMIDE
     Indication: Product used for unknown indication

REACTIONS (8)
  - Neutrophil count decreased [Recovering/Resolving]
  - Gastrointestinal disorder [Recovering/Resolving]
  - Cystitis [Unknown]
  - Platelet count decreased [Unknown]
  - Red blood cell count decreased [Unknown]
  - White blood cell count decreased [Unknown]
  - Dizziness [Recovering/Resolving]
  - Brain fog [Recovering/Resolving]

NARRATIVE: CASE EVENT DATE: 20250808
